FAERS Safety Report 5481187-9 (Version None)
Quarter: 2007Q4

REPORT INFORMATION
  Report Type: 
  Country: None (occurrence: None)
  Receive Date: 20071010
  Receipt Date: 20071003
  Transmission Date: 20080405
  Serious: Yes (Other)
  Sender: FDA-Public Use
  Company Number: PHEH2007US12743

PATIENT

DRUGS (2)
  1. FORADIL [Suspect]
     Dosage: 4.5 G, UNK
  2. SYMBICORT [Suspect]

REACTIONS (1)
  - ATRIAL FIBRILLATION [None]
